FAERS Safety Report 11102138 (Version 1)
Quarter: 2015Q2

REPORT INFORMATION
  Report Type: Spontaneous
  Country: PL (occurrence: PL)
  Receive Date: 20150511
  Receipt Date: 20150511
  Transmission Date: 20150821
  Serious: Yes (Other)
  Sender: FDA-Public Use
  Company Number: PL-AMGEN-POLSP2015043394

PATIENT
  Age: 64 Year
  Sex: Female

DRUGS (9)
  1. METAZYDYNA                         /00489601/ [Concomitant]
     Dosage: 2 DF, (20 MG) UNK
  2. CALCIUM                            /00060701/ [Concomitant]
     Active Substance: CALCIUM
     Dosage: 1000 MG, UNK
  3. VITAMIN D                          /00107901/ [Concomitant]
     Active Substance: ERGOCALCIFEROL
     Dosage: 1000 IU, UNK
  4. VIVACE                             /00885601/ [Concomitant]
     Dosage: 1.25 MG, UNK
  5. AGREGEX [Concomitant]
     Active Substance: CLOPIDOGREL BISULFATE
     Dosage: 1 DF, UNK
  6. CARVEDILOL. [Concomitant]
     Active Substance: CARVEDILOL
     Dosage: 6.25 MG IN MORNING, 3.125 MG IN THE EVENING, UNK
  7. PROLIA [Suspect]
     Active Substance: DENOSUMAB
     Indication: PRODUCT USED FOR UNKNOWN INDICATION
     Dosage: UNK
     Route: 065
  8. HISTIGEN [Concomitant]
  9. KALIPOZ [Concomitant]
     Active Substance: POTASSIUM CHLORIDE
     Dosage: 391 MG, UNK

REACTIONS (8)
  - Muscle contractions involuntary [Unknown]
  - Mobility decreased [Unknown]
  - Erythema migrans [Unknown]
  - Mitral valve incompetence [Unknown]
  - Nausea [Unknown]
  - Arthropod bite [Unknown]
  - Tricuspid valve incompetence [Unknown]
  - Vertigo [Unknown]
